FAERS Safety Report 14378268 (Version 2)
Quarter: 2018Q1

REPORT INFORMATION
  Report Type: Spontaneous
  Country: US (occurrence: US)
  Receive Date: 20180111
  Receipt Date: 20180119
  Transmission Date: 20180509
  Serious: Yes (Death, Hospitalization)
  Sender: FDA-Public Use
  Company Number: US-VIFOR (INTERNATIONAL) INC.-VIT-2018-00297

PATIENT
  Age: 45 Year
  Sex: Female

DRUGS (32)
  1. ATORVASTATIN CALCIUM. [Concomitant]
     Active Substance: ATORVASTATIN CALCIUM
  2. CITALOPRAM HYDROBROMIDE. [Concomitant]
     Active Substance: CITALOPRAM HYDROBROMIDE
  3. CLONIDINE HYDROCHLORIDE. [Concomitant]
     Active Substance: CLONIDINE HYDROCHLORIDE
  4. METAMUCIL [Concomitant]
     Active Substance: PLANTAGO SEED
  5. NOVOLOG [Concomitant]
     Active Substance: INSULIN ASPART
  6. OMEPRAZOLE. [Concomitant]
     Active Substance: OMEPRAZOLE
  7. ONDANSETRON HYDROCHLORIDE. [Concomitant]
     Active Substance: ONDANSETRON HYDROCHLORIDE
  8. PARACETAMOL~~OXYCODONE HYDROCHLORIDE [Concomitant]
  9. SENNA LAXATIVE [Concomitant]
     Active Substance: SENNOSIDES
  10. TRAZODONE HYDROCHLORIDE. [Concomitant]
     Active Substance: TRAZODONE HYDROCHLORIDE
  11. VENTOLIN HFA [Concomitant]
     Active Substance: ALBUTEROL SULFATE
  12. SALBUTAMOL SULFATE [Concomitant]
     Active Substance: ALBUTEROL SULFATE
  13. RENA-VITE RX [Concomitant]
     Active Substance: ASCORBIC ACID\BIOTIN\CALCIUM PANTOTHENATE\CYANOCOBALAMIN\FOLIC ACID\NIACINAMIDE\PYRIDOXINE HYDROCHLORIDE\RIBOFLAVIN\THIAMINE MONONITRATE
  14. METOCLOPRAMIDE HYDROCHLORIDE. [Concomitant]
     Active Substance: METOCLOPRAMIDE HYDROCHLORIDE
  15. ROPINIROLE HYDROCHLORIDE. [Concomitant]
     Active Substance: ROPINIROLE HYDROCHLORIDE
  16. TOUJEO [Concomitant]
     Active Substance: INSULIN GLARGINE
  17. BENZONATATE. [Concomitant]
     Active Substance: BENZONATATE
  18. LOPERAMIDE HYDROCHLORIDE. [Concomitant]
     Active Substance: LOPERAMIDE HYDROCHLORIDE
  19. SUCRALFATE. [Concomitant]
     Active Substance: SUCRALFATE
  20. ARTIFICIAL TEARS [Concomitant]
     Active Substance: GLYCERIN\HYPROMELLOSES\POLYETHYLENE GLYCOL 400
  21. SILTUSSIN SA [Concomitant]
     Active Substance: GUAIFENESIN
  22. COLECALCIFEROL [Concomitant]
     Active Substance: CHOLECALCIFEROL
  23. PARACETAMOL [Concomitant]
     Active Substance: ACETAMINOPHEN
  24. FOLIC ACID. [Concomitant]
     Active Substance: FOLIC ACID
  25. LEVOTHYROXINE SODIUM. [Concomitant]
     Active Substance: LEVOTHYROXINE SODIUM
  26. ALPRAZOLAM. [Concomitant]
     Active Substance: ALPRAZOLAM
  27. CEPACOL SORE THROAT NOS [Concomitant]
     Active Substance: BENZOCAINE\MENTHOL OR DYCLONINE HYDROCHLORIDE\GLYCERIN
  28. VELTASSA [Suspect]
     Active Substance: PATIROMER
     Indication: HYPERKALAEMIA
     Route: 048
     Dates: start: 20170512
  29. AMLODIPINE BESILATE [Concomitant]
     Active Substance: AMLODIPINE BESYLATE
  30. BUSPIRONE HYDROCHLORIDE. [Concomitant]
     Active Substance: BUSPIRONE HYDROCHLORIDE
  31. LABETALOL HYDROCHLORIDE. [Concomitant]
     Active Substance: LABETALOL HYDROCHLORIDE
  32. LORATADINE. [Concomitant]
     Active Substance: LORATADINE

REACTIONS (3)
  - Death [Fatal]
  - Off label use [Unknown]
  - Diabetes mellitus [Unknown]

NARRATIVE: CASE EVENT DATE: 20170512
